FAERS Safety Report 25878622 (Version 1)
Quarter: 2025Q4

REPORT INFORMATION
  Report Type: Spontaneous
  Country: US (occurrence: US)
  Receive Date: 20251003
  Receipt Date: 20251003
  Transmission Date: 20260118
  Serious: No
  Sender: SANOFI AVENTIS
  Company Number: US-SANOFI-02671091

PATIENT
  Age: 62 Year
  Sex: Female

DRUGS (3)
  1. LANTUS SOLOSTAR [Suspect]
     Active Substance: INSULIN GLARGINE
     Indication: Type 2 diabetes mellitus
     Dosage: 20 UNITS IN THE MORNING AND 45 UNITS AT NIGHT
     Route: 065
  2. LANTUS SOLOSTAR [Suspect]
     Active Substance: INSULIN GLARGINE
     Dosage: 25 IU, HS
     Route: 065
  3. MOUNJARO [Concomitant]
     Active Substance: TIRZEPATIDE

REACTIONS (1)
  - Off label use [Unknown]
